FAERS Safety Report 9604560 (Version 2)
Quarter: 2013Q4

REPORT INFORMATION
  Report Type: Spontaneous
  Country: ZA (occurrence: ZA)
  Receive Date: 20131008
  Receipt Date: 20131104
  Transmission Date: 20140711
  Serious: Yes (Hospitalization, Other)
  Sender: FDA-Public Use
  Company Number: ZA-PFIZER INC-2013284259

PATIENT
  Age: 86 Year
  Sex: Female
  Weight: 54 kg

DRUGS (14)
  1. LYRICA [Suspect]
     Indication: NEUROPATHY PERIPHERAL
     Dosage: 25 MG, 2X/DAY (BD)
     Dates: start: 20130806
  2. LYRICA [Suspect]
     Dosage: 75 MG, 2X/DAY (BD)
     Route: 048
     Dates: start: 20130902, end: 201309
  3. LYRICA [Suspect]
     Dosage: 25 MG, 2X/DAY (BD)
     Route: 048
     Dates: start: 201309, end: 20131001
  4. ARTHROTEC [Concomitant]
     Indication: ARTHRITIS
     Dosage: UNK, ONCE DAILY
     Route: 048
  5. ASPAVOR [Concomitant]
     Indication: BLOOD CHOLESTEROL
     Dosage: UNK, ONCE DAILY
  6. AZAPRESS [Concomitant]
     Indication: ARTHRITIS
     Dosage: UNK, ONCE DAILY
     Route: 048
  7. CARDICOR [Concomitant]
     Indication: BLOOD PRESSURE
     Dosage: UNK, ONCE DAILY
     Route: 048
  8. ECOTRIN [Concomitant]
     Indication: PROPHYLAXIS
     Dosage: UNK, ONCE DAILY
     Route: 048
  9. FEDALOC SR [Concomitant]
     Indication: HYPERTENSION
     Dosage: UNK, ONCE DAILY
     Route: 048
  10. GASTRON [Concomitant]
     Indication: PROPHYLAXIS AGAINST DIARRHOEA
     Dosage: UNK, ONCE DAILY
     Route: 048
  11. PURESIS [Concomitant]
     Indication: POLYURIA
     Dosage: UNK, ONCE DAILY
     Route: 048
  12. SALAZOPYRIN [Concomitant]
     Indication: ARTHRITIS
     Dosage: ONE DAILY
     Route: 048
  13. TRAMACET [Concomitant]
     Indication: ARTHRITIS
     Dosage: 2 DF, 3X/DAY (TDS)
     Route: 048
  14. DONECEPT [Concomitant]
     Indication: DEMENTIA ALZHEIMER^S TYPE
     Dosage: 5 MG, 1X/DAY NOCTE (AT NIGHT)
     Route: 048
     Dates: start: 20130916, end: 20131001

REACTIONS (3)
  - Coma [Recovered/Resolved]
  - Pneumonia aspiration [Recovered/Resolved]
  - Vomiting [Recovered/Resolved]
